FAERS Safety Report 6634712-6 (Version None)
Quarter: 2010Q1

REPORT INFORMATION
  Report Type: 
  Country: None (occurrence: None)
  Receive Date: 20100311
  Receipt Date: 20100311
  Transmission Date: 20100710
  Serious: Yes (Disabling)
  Sender: FDA-Public Use
  Company Number: None

PATIENT
  Sex: Female
  Weight: 81.1939 kg

DRUGS (1)
  1. LIOTHYRONINE SODIUM TAB [Suspect]
     Indication: TRI-IODOTHYRONINE DECREASED
     Dosage: 5 MCG 2 X DAY
     Dates: start: 20090829, end: 20090908

REACTIONS (4)
  - ASTHENIA [None]
  - PAIN IN EXTREMITY [None]
  - PRODUCT SUBSTITUTION ISSUE [None]
  - WEIGHT INCREASED [None]
